FAERS Safety Report 9619322 (Version 2)
Quarter: 2016Q1

REPORT INFORMATION
  Report Type: Report from Study
  Country: US (occurrence: US)
  Receive Date: 20131014
  Receipt Date: 20160304
  Transmission Date: 20160526
  Serious: Yes (Hospitalization, Other)
  Sender: FDA-Public Use
  Company Number: US-PFIZER INC-2013292255

PATIENT
  Age: 34 Year
  Sex: Female

DRUGS (9)
  1. IRON [Concomitant]
     Active Substance: IRON
     Indication: ANAEMIA
     Dosage: UNK
  2. DILANTIN [Suspect]
     Active Substance: PHENYTOIN
     Indication: GENERALISED TONIC-CLONIC SEIZURE
     Dosage: 100 MG, 3X/DAY
     Route: 048
  3. DILANTIN [Interacting]
     Active Substance: PHENYTOIN
     Dosage: 300 MG, DAILY
  4. PYRIDIUM [Concomitant]
     Active Substance: PHENAZOPYRIDINE
     Indication: ANAEMIA
     Dosage: UNK
  5. SODIUM BROMIDE [Concomitant]
     Active Substance: SODIUM BROMIDE
     Indication: SEIZURE
     Dosage: 1 G, 3X/DAY
     Route: 048
  6. DILANTIN [Interacting]
     Active Substance: PHENYTOIN
     Dosage: 300 MG, DAILY
  7. DILANTIN [Interacting]
     Active Substance: PHENYTOIN
     Dosage: 300 MG, DAILY
  8. DILANTIN [Interacting]
     Active Substance: PHENYTOIN
     Dosage: 300 MG, DAILY
  9. ASPIRIN. [Concomitant]
     Active Substance: ASPIRIN
     Indication: ANAEMIA
     Dosage: UNK

REACTIONS (9)
  - Toxicity to various agents [Unknown]
  - Choreoathetosis [Unknown]
  - Nystagmus [Unknown]
  - Drug interaction [Unknown]
  - Cerebellar ataxia [Unknown]
  - Disorientation [Unknown]
  - Drug effect incomplete [Unknown]
  - Speech disorder [Unknown]
  - Abnormal behaviour [Unknown]
